FAERS Safety Report 6406244-1 (Version None)
Quarter: 2009Q4

REPORT INFORMATION
  Report Type: 
  Country: None (occurrence: None)
  Receive Date: 20091019
  Receipt Date: 20091006
  Transmission Date: 20100525
  Serious: Yes (Hospitalization, Other)
  Sender: FDA-Public Use
  Company Number: PHEH2007US05503

PATIENT
  Sex: Male

DRUGS (15)
  1. ZOMETA [Suspect]
     Indication: MULTIPLE MYELOMA
     Dosage: 4 MG/5 ML MONTHLY
     Route: 042
     Dates: start: 20040921, end: 20060501
  2. DEXAMETHASONE [Suspect]
     Indication: MULTIPLE MYELOMA
     Dosage: UNK
     Dates: start: 20031219
  3. REVLIMID [Suspect]
  4. STEROIDS NOS [Concomitant]
  5. CHEMOTHERAPEUTICS NOS [Concomitant]
  6. THALIDOMIDE [Concomitant]
     Dosage: UNK
     Dates: start: 20031219
  7. MELPHALAN [Concomitant]
     Dosage: 200 MG/M2
     Dates: start: 20040101
  8. LENALIDOMIDE [Concomitant]
     Dosage: 25 MG DAILY
     Dates: start: 20061121
  9. HYDROCHLOROTHIAZIDE [Concomitant]
     Dosage: 25 MG, QD
  10. ACEON [Concomitant]
     Dosage: ONE HALF TABLET DAILY
     Dates: start: 20051201
  11. ACTOS [Concomitant]
     Dosage: 1 TABLET DAILY
  12. VYTORIN [Concomitant]
     Dosage: 1 TABLET DAILY
  13. METFORMIN HYDROCHLORIDE [Concomitant]
     Dosage: 500 MG DAILY
  14. MULTI-VITAMINS [Concomitant]
     Dosage: 1 TABLET DAILY
  15. PENICILLIN V POTASSIUM [Concomitant]
     Dosage: 500 MG DAILY

REACTIONS (40)
  - ANXIETY [None]
  - APPETITE DISORDER [None]
  - ARTHRALGIA [None]
  - ARTHRITIS [None]
  - ASTHENIA [None]
  - BACK PAIN [None]
  - BLOOD PRESSURE FLUCTUATION [None]
  - BLOOD PRESSURE INCREASED [None]
  - BONE DISORDER [None]
  - BRONCHITIS [None]
  - BRONCHOPNEUMONIA [None]
  - CENTRAL VENOUS CATHETERISATION [None]
  - CHEST WALL MASS [None]
  - DIABETES MELLITUS [None]
  - DISEASE PROGRESSION [None]
  - DIVERTICULITIS [None]
  - DIVERTICULUM [None]
  - DRUG TOXICITY [None]
  - EAR PAIN [None]
  - FATIGUE [None]
  - GINGIVAL EROSION [None]
  - GOUT [None]
  - HEADACHE [None]
  - HYPERGLYCAEMIA [None]
  - HYPERURICAEMIA [None]
  - INJURY [None]
  - INTESTINAL RESECTION [None]
  - MYELOMA RECURRENCE [None]
  - NAUSEA [None]
  - OSTEONECROSIS [None]
  - PAIN [None]
  - PAIN IN EXTREMITY [None]
  - PAIN IN JAW [None]
  - PNEUMONIA PRIMARY ATYPICAL [None]
  - PRIMARY SEQUESTRUM [None]
  - SKIN LESION [None]
  - SKIN PAPILLOMA [None]
  - SPINAL HAEMANGIOMA [None]
  - SURGERY [None]
  - VISION BLURRED [None]
